FAERS Safety Report 21744610 (Version 1)
Quarter: 2022Q4

REPORT INFORMATION
  Report Type: Spontaneous
  Country: JP (occurrence: JP)
  Receive Date: 20221218
  Receipt Date: 20221218
  Transmission Date: 20230112
  Serious: Yes (Other)
  Sender: FDA-Public Use
  Company Number: JP-STRIDES ARCOLAB LIMITED-2022SP016970

PATIENT
  Age: 5 Decade
  Sex: Male

DRUGS (7)
  1. ABACAVIR [Suspect]
     Active Substance: ABACAVIR
     Indication: HIV infection
     Dosage: UNK
     Route: 065
  2. EFAVIRENZ [Suspect]
     Active Substance: EFAVIRENZ
     Indication: HIV infection
     Dosage: UNK
     Route: 065
  3. LAMIVUDINE [Suspect]
     Active Substance: LAMIVUDINE
     Indication: HIV infection
     Dosage: UNK
     Route: 065
  4. FLUCONAZOLE [Suspect]
     Active Substance: FLUCONAZOLE
     Indication: Meningitis cryptococcal
     Dosage: 400 MILLIGRAM PER DAY (CONSOLIDATION THERAPY FOR 6 MONTHS)
     Route: 065
  5. FLUCONAZOLE [Suspect]
     Active Substance: FLUCONAZOLE
     Dosage: 200 MILLIGRAM PER DAY (MAINTENANCE THERAPY FOR 3 MONTHS)
     Route: 065
  6. AMPHOTERICIN B [Suspect]
     Active Substance: AMPHOTERICIN B
     Indication: Meningitis cryptococcal
     Dosage: 3 MILLIGRAM/KILOGRAM EVERY 24 HRS (INDUCTION THERAPY)
     Route: 065
  7. AMPHOTERICIN B [Suspect]
     Active Substance: AMPHOTERICIN B
     Dosage: 3 MILLIGRAM/KILOGRAM EVERY 24 HRS (DIAGNOSTIC THERAPY)
     Route: 065

REACTIONS (8)
  - Epilepsy [Not Recovered/Not Resolved]
  - Hemiparesis [Unknown]
  - Hemiparesis [Not Recovered/Not Resolved]
  - Aphasia [Unknown]
  - Altered state of consciousness [Unknown]
  - Sensory disturbance [Unknown]
  - Cognitive disorder [Not Recovered/Not Resolved]
  - Immune reconstitution inflammatory syndrome [Unknown]
